FAERS Safety Report 7001149-X (Version None)
Quarter: 2010Q3

REPORT INFORMATION
  Report Type: 
  Country: None (occurrence: None)
  Receive Date: 20100920
  Receipt Date: 20100910
  Transmission Date: 20110219
  Serious: Yes (Hospitalization)
  Sender: FDA-Public Use
  Company Number: ZA-ROCHE-724176

PATIENT
  Sex: Female
  Weight: 59 kg

DRUGS (11)
  1. TOCILIZUMAB [Suspect]
     Indication: RHEUMATOID ARTHRITIS
     Dosage: DATE OF LAST DOSE PRIOR TO SAE: 05 AUGUST 2010. DOSE: 600 MG, FORM: INFUSION
     Route: 042
     Dates: start: 20060323
  2. TOCILIZUMAB [Suspect]
     Dosage: PATIENT ENROLLED IN BLINDED MRA CORE STUDY WA18063 END OF STUDY UNBLINDING REVEALED PT RECEVIED MRA.
     Route: 042
  3. METHOTREXATE [Concomitant]
     Dates: start: 20060109
  4. METHOTREXATE [Concomitant]
     Dates: start: 20080524
  5. FOLIC ACID [Concomitant]
     Dates: start: 19990801
  6. DOXAPHENE [Concomitant]
     Dates: start: 20060109
  7. ELTROXIN [Concomitant]
     Dosage: DAILY DOSE: 100
     Dates: start: 20060109
  8. FOSAMAX [Concomitant]
     Dates: start: 19991015
  9. CALTRATE PLUS [Concomitant]
     Dates: start: 20050509
  10. MITIL [Concomitant]
     Dosage: 1 PRN
     Dates: start: 20060109
  11. NAPROXEN [Concomitant]
     Dates: start: 20090109

REACTIONS (1)
  - CHEST PAIN [None]
